FAERS Safety Report 9184639 (Version 1)
Quarter: 2013Q1

REPORT INFORMATION
  Report Type: Spontaneous
  Country: UA (occurrence: UA)
  Receive Date: 20130324
  Receipt Date: 20130324
  Transmission Date: 20140127
  Serious: Yes (Hospitalization, Other)
  Sender: FDA-Public Use
  Company Number: UA-ROCHE-1203118

PATIENT
  Age: 74 Year
  Sex: Male

DRUGS (2)
  1. LUCENTIS [Suspect]
     Indication: DIABETIC VASCULAR DISORDER
     Dosage: 10 MG/ML
     Route: 050
     Dates: start: 20130219
  2. EYLEA [Suspect]
     Indication: DIABETIC VASCULAR DISORDER
     Dosage: 40 MG/ML
     Route: 065
     Dates: start: 20130221

REACTIONS (3)
  - Transient ischaemic attack [Recovered/Resolved]
  - Injection site swelling [Recovered/Resolved]
  - Cyanosis [Recovered/Resolved]
